FAERS Safety Report 9290179 (Version 1)
Quarter: 2013Q2

REPORT INFORMATION
  Report Type: Spontaneous
  Country: US (occurrence: None)
  Receive Date: 20130514
  Receipt Date: 20130514
  Transmission Date: 20140414
  Serious: Yes (Other)
  Sender: FDA-Public Use
  Company Number: None

PATIENT
  Age: 27 Year
  Sex: Female
  Weight: 63.5 kg

DRUGS (1)
  1. LO LOESTRIN FE [Suspect]
     Indication: CONTRACEPTION
     Dates: start: 20130328, end: 20130421

REACTIONS (2)
  - Depression [None]
  - Mood altered [None]
